FAERS Safety Report 11165934 (Version 2)
Quarter: 2015Q2

REPORT INFORMATION
  Report Type: Report from Study
  Country: US (occurrence: US)
  Receive Date: 20150604
  Receipt Date: 20150623
  Transmission Date: 20150821
  Serious: No
  Sender: FDA-Public Use
  Company Number: US-ACTELION-A-NJ2015-117100

PATIENT
  Age: 69 Year
  Sex: Female

DRUGS (3)
  1. VELETRI [Suspect]
     Active Substance: EPOPROSTENOL
     Indication: PULMONARY HYPERTENSION
     Dosage: 4.46 NG/KG, PER MIN
     Route: 042
     Dates: start: 20150312
  2. VELETRI [Suspect]
     Active Substance: EPOPROSTENOL
     Dosage: 5.2 NG/KG, PER MIN
     Route: 042
     Dates: start: 20150409
  3. OPSUMIT [Suspect]
     Active Substance: MACITENTAN
     Indication: PULMONARY HYPERTENSION
     Dosage: 10 MG, QD
     Route: 048
     Dates: start: 20141027

REACTIONS (10)
  - Nightmare [Unknown]
  - Dizziness [Unknown]
  - Headache [Unknown]
  - Fatigue [Unknown]
  - Vomiting [Unknown]
  - Nausea [Unknown]
  - Pain in jaw [Unknown]
  - Blister [Recovered/Resolved]
  - Diarrhoea [Unknown]
  - Insomnia [Unknown]
